FAERS Safety Report 9288980 (Version 3)
Quarter: 2013Q3

REPORT INFORMATION
  Report Type: Spontaneous
  Country: CZ (occurrence: CZ)
  Receive Date: 20130514
  Receipt Date: 20130725
  Transmission Date: 20140515
  Serious: Yes (Other)
  Sender: FDA-Public Use
  Company Number: CZ-GLAXOSMITHKLINE-B0891509A

PATIENT
  Age: 48 Year
  Sex: Female

DRUGS (4)
  1. TROBALT [Suspect]
     Indication: EPILEPSY
     Dates: start: 20130227
  2. VIMPAT [Concomitant]
     Dosage: 200MG PER DAY
  3. LYRICA [Concomitant]
     Dosage: 300MG PER DAY
  4. DEPAKINE [Concomitant]
     Dosage: 500MG PER DAY

REACTIONS (5)
  - Convulsion [Not Recovered/Not Resolved]
  - Somnolence [Recovered/Resolved]
  - Vision blurred [Recovered/Resolved]
  - Fatigue [Recovered/Resolved]
  - Headache [Unknown]
